FAERS Safety Report 10431645 (Version 2)
Quarter: 2014Q3

REPORT INFORMATION
  Report Type: Spontaneous
  Country: FR (occurrence: None)
  Receive Date: 20140903
  Receipt Date: 20140918
  Transmission Date: 20150326
  Serious: Yes (Death, Hospitalization)
  Sender: FDA-Public Use
  Company Number: 2507078

PATIENT
  Age: 9 Year
  Sex: Male
  Weight: 30 kg

DRUGS (15)
  1. VINCRISTINE SULFATE. [Suspect]
     Active Substance: VINCRISTINE SULFATE
     Indication: ACUTE LYMPHOCYTIC LEUKAEMIA
     Route: 042
     Dates: start: 20140423, end: 20140501
  2. PREDNISOLONE METASULFOBENZOATE SODIUM [Suspect]
     Active Substance: PREDNISOLONE SODIUM METAZOATE
     Indication: ACUTE LYMPHOCYTIC LEUKAEMIA
     Dosage: 65 MG MILLIGRAM(S),1 DAY
     Route: 048
     Dates: start: 20140424, end: 20140503
  3. DAUNORUBICIN HYDROCHLORIDE. [Suspect]
     Active Substance: DAUNORUBICIN HYDROCHLORIDE
     Indication: ACUTE LYMPHOCYTIC LEUKAEMIA
     Route: 042
     Dates: start: 20140424, end: 20140501
  4. AMIKACIN SULFATE. [Concomitant]
     Active Substance: AMIKACIN SULFATE
  5. PREDNISOLONE. [Suspect]
     Active Substance: PREDNISOLONE
     Indication: ACUTE LYMPHOCYTIC LEUKAEMIA
     Route: 037
     Dates: start: 20140428, end: 20140428
  6. METHOTREXATE [Suspect]
     Active Substance: METHOTREXATE
     Indication: ACUTE LYMPHOCYTIC LEUKAEMIA
     Route: 037
     Dates: start: 20140428, end: 20140428
  7. PREDNISOLONE. [Suspect]
     Active Substance: PREDNISOLONE
     Indication: ACUTE LYMPHOCYTIC LEUKAEMIA
     Route: 037
     Dates: start: 20140428, end: 20140428
  8. CEFTAZIDIME. [Concomitant]
     Active Substance: CEFTAZIDIME
  9. CYCLOPHOSPHAMIDE. [Suspect]
     Active Substance: CYCLOPHOSPHAMIDE
     Indication: ACUTE LYMPHOCYTIC LEUKAEMIA
     Route: 042
     Dates: start: 20140424, end: 20140424
  10. ALIZAPRIDE HYDROCHLORIDE [Concomitant]
     Active Substance: ALIZAPRIDE HYDROCHLORIDE
  11. VANCOMYCIN [Concomitant]
     Active Substance: VANCOMYCIN
  12. L-ASPARAGINASE [Suspect]
     Active Substance: ASPARAGINASE
     Indication: ACUTE LYMPHOCYTIC LEUKAEMIA
     Dosage: 10.6 KU; D5 AND D8
     Route: 042
     Dates: start: 20140427, end: 20140501
  13. CYTARABINE. [Suspect]
     Active Substance: CYTARABINE
     Indication: ACUTE LYMPHOCYTIC LEUKAEMIA
     Route: 037
     Dates: start: 20140428, end: 20140428
  14. IMATINIB MESILATE [Suspect]
     Active Substance: IMATINIB MESYLATE
     Indication: ACUTE LYMPHOCYTIC LEUKAEMIA
     Dosage: 300 MG MILLIGRAM(S), 1 DAY
     Route: 048
     Dates: start: 20140423
  15. MESNA. [Concomitant]
     Active Substance: MESNA

REACTIONS (19)
  - Headache [None]
  - Petechiae [None]
  - Vomiting [None]
  - Loss of consciousness [None]
  - Toxicity to various agents [None]
  - Hyperthermia [None]
  - Tachycardia [None]
  - Febrile bone marrow aplasia [None]
  - Urinary incontinence [None]
  - Brain oedema [None]
  - Acute lymphocytic leukaemia [None]
  - Cerebral vasoconstriction [None]
  - Left ventricular hypertrophy [None]
  - Coma [None]
  - Convulsion [None]
  - Malignant neoplasm progression [None]
  - Asthenia [None]
  - Neurological decompensation [None]
  - Delirium [None]

NARRATIVE: CASE EVENT DATE: 20140505
